FAERS Safety Report 7106137-0 (Version None)
Quarter: 2010Q4

REPORT INFORMATION
  Report Type: 
  Country: None (occurrence: None)
  Receive Date: 20101116
  Receipt Date: 20101103
  Transmission Date: 20110411
  Serious: Yes (Other)
  Sender: FDA-Public Use
  Company Number: GB-MYLANLABS-2010S1016266

PATIENT
  Sex: Female

DRUGS (9)
  1. LOFEPRAMINE [Suspect]
     Indication: BIPOLAR DISORDER
     Dates: start: 20070101
  2. LAMOTRIGINE [Suspect]
     Indication: BIPOLAR DISORDER
  3. CYPROTERONE [Suspect]
     Indication: GROWTH HORMONE DEFICIENCY
     Route: 048
     Dates: start: 20100601, end: 20100701
  4. PRUCALOPRIDE [Suspect]
     Indication: CONSTIPATION
     Route: 048
     Dates: start: 20100917, end: 20101001
  5. TRAMADOL HCL [Suspect]
     Indication: PAIN
     Route: 048
     Dates: start: 20070101
  6. DOXATE [Suspect]
     Indication: CONSTIPATION
     Route: 048
     Dates: start: 20070101
  7. SENNA [Suspect]
     Indication: CONSTIPATION
     Route: 048
     Dates: start: 20090101
  8. MOVICOL [Suspect]
     Indication: CONSTIPATION
     Route: 048
     Dates: start: 20090101
  9. CYCLIZINE [Suspect]
     Indication: MALAISE
     Route: 048
     Dates: start: 20100101

REACTIONS (1)
  - IRRITABLE BOWEL SYNDROME [None]
